FAERS Safety Report 9000947 (Version 1)
Quarter: 2012Q4

REPORT INFORMATION
  Report Type: Spontaneous
  Country: US (occurrence: None)
  Receive Date: 20121226
  Receipt Date: 20121226
  Transmission Date: 20130627
  Serious: Yes (Other)
  Sender: FDA-Public Use
  Company Number: TPA2012A09900

PATIENT
  Sex: Female

DRUGS (1)
  1. EDARBYCLOR [Suspect]

REACTIONS (2)
  - Loss of consciousness [None]
  - Hypokalaemia [None]
